FAERS Safety Report 4382344-5 (Version None)
Quarter: 2004Q2

REPORT INFORMATION
  Report Type: 
  Country: None (occurrence: None)
  Receive Date: 20040622
  Receipt Date: 20040525
  Transmission Date: 20050107
  Serious: Yes (Hospitalization)
  Sender: FDA-Public Use
  Company Number: PHHO2004JP07672

PATIENT
  Age: 71 Year
  Sex: Female

DRUGS (5)
  1. DIOVAN [Suspect]
     Dosage: 80 MG / DAY
     Route: 048
     Dates: start: 20030403, end: 20030818
  2. GLYBURIDE [Concomitant]
     Indication: DIABETES MELLITUS
     Dosage: 10 MG
     Route: 048
  3. BASEN [Concomitant]
     Indication: DIABETES MELLITUS
     Dosage: .9 MG
     Route: 048
  4. ALTAT [Concomitant]
     Indication: GASTRITIS
     Dosage: 112.5 MG
     Route: 048
  5. LIPITOR [Concomitant]
     Dosage: 10 MG
     Route: 048

REACTIONS (2)
  - SENSORY DISTURBANCE [None]
  - THROMBOTIC STROKE [None]
